FAERS Safety Report 17743516 (Version 1)
Quarter: 2020Q2

REPORT INFORMATION
  Report Type: Report from Study
  Country: BR (occurrence: BR)
  Receive Date: 20200505
  Receipt Date: 20200505
  Transmission Date: 20200714
  Serious: Yes (Other)
  Sender: FDA-Public Use
  Company Number: BR-UCBSA-2020018037

PATIENT
  Sex: Female
  Weight: 87 kg

DRUGS (1)
  1. CERTOLIZUMAB PEGOL RA [Suspect]
     Active Substance: CERTOLIZUMAB PEGOL
     Indication: RHEUMATOID ARTHRITIS
     Dosage: UNK
     Route: 058
     Dates: start: 201908

REACTIONS (4)
  - Weight increased [Not Recovered/Not Resolved]
  - Hand deformity [Not Recovered/Not Resolved]
  - Liver disorder [Not Recovered/Not Resolved]
  - Foot deformity [Not Recovered/Not Resolved]
